FAERS Safety Report 24091679 (Version 1)
Quarter: 2024Q3

REPORT INFORMATION
  Report Type: Spontaneous
  Country: US (occurrence: None)
  Receive Date: 20240713
  Receipt Date: 20240713
  Transmission Date: 20241017
  Serious: Yes (Hospitalization)
  Sender: Public
  Company Number: None

PATIENT
  Age: 67 Year
  Sex: Female
  Weight: 63 kg

DRUGS (2)
  1. CYTARABINE [Suspect]
     Active Substance: CYTARABINE
     Dates: start: 20240615, end: 20240621
  2. DAUNORUBICIN [Suspect]
     Active Substance: DAUNORUBICIN

REACTIONS (5)
  - Body temperature increased [None]
  - Blood culture positive [None]
  - Bacteroides test positive [None]
  - Streptococcus test positive [None]
  - Haematochezia [None]

NARRATIVE: CASE EVENT DATE: 20240701
